FAERS Safety Report 6126190-0 (Version None)
Quarter: 2009Q1

REPORT INFORMATION
  Report Type: 
  Country: None (occurrence: None)
  Receive Date: 20090320
  Receipt Date: 20090313
  Transmission Date: 20090719
  Serious: Yes (Other)
  Sender: FDA-Public Use
  Company Number: B0563974A

PATIENT
  Age: 10 Year
  Sex: Female

DRUGS (3)
  1. RELENZA [Suspect]
     Indication: DRUG USE FOR UNKNOWN INDICATION
     Dosage: 10MG TWICE PER DAY
     Route: 055
     Dates: start: 20090228, end: 20090302
  2. HUSCODE [Concomitant]
     Route: 048
     Dates: start: 20090228
  3. MUCOSOLVAN [Concomitant]
     Dosage: 45MG PER DAY
     Route: 048
     Dates: start: 20090228

REACTIONS (1)
  - ABNORMAL BEHAVIOUR [None]
